FAERS Safety Report 12266068 (Version 1)
Quarter: 2016Q2

REPORT INFORMATION
  Report Type: Spontaneous
  Country: CA (occurrence: CA)
  Receive Date: 20160413
  Receipt Date: 20160413
  Transmission Date: 20160815
  Serious: Yes (Hospitalization, Other)
  Sender: FDA-Public Use
  Company Number: CA-PURDUE PHARMA-CAN-2016-0006595

PATIENT
  Sex: Female

DRUGS (2)
  1. HEROIN [Suspect]
     Active Substance: DIACETYLMORPHINE
     Indication: PRODUCT USED FOR UNKNOWN INDICATION
     Dosage: 0.1 TO 1 G, DAILY
     Route: 065
  2. MORPHINE SULFATE. [Suspect]
     Active Substance: MORPHINE SULFATE
     Indication: PRODUCT USED FOR UNKNOWN INDICATION
     Dosage: 100 TO 300  MG, DAILY
     Route: 065

REACTIONS (5)
  - Substance dependence [Unknown]
  - Foster care [Unknown]
  - Ill-defined disorder [Unknown]
  - Hospitalisation [Unknown]
  - Substance abuse [Unknown]
